FAERS Safety Report 17301397 (Version 1)
Quarter: 2020Q1

REPORT INFORMATION
  Report Type: Spontaneous
  Country: FR (occurrence: FR)
  Receive Date: 20200122
  Receipt Date: 20200122
  Transmission Date: 20200409
  Serious: Yes (Hospitalization)
  Sender: FDA-Public Use
  Company Number: FR-EISAI MEDICAL RESEARCH-EC-2020-068667

PATIENT
  Age: 49 Year
  Sex: Male
  Weight: 69 kg

DRUGS (8)
  1. LAMICTAL [Concomitant]
     Active Substance: LAMOTRIGINE
     Indication: EPILEPSY
     Dosage: (300 DF DAILY) 150 DF IN THE MORNING AND 150 DF IN THE EVENING
     Route: 065
  2. ZONEGRAN [Suspect]
     Active Substance: ZONISAMIDE
     Dosage: (100 MG DAILY) 50 MG IN THE MORNING AND 50 MG IN THE EVENING
     Route: 048
     Dates: start: 202001
  3. DEPAKINE CHRONO [Concomitant]
     Active Substance: VALPROATE SODIUM
     Indication: EPILEPSY
     Dosage: (750 DF DAILY) 500 DF IN THE MORNING AND 250 DF IN THE EVENING
     Route: 065
  4. URBANYL [Concomitant]
     Active Substance: CLOBAZAM
     Indication: EPILEPSY
     Dosage: (30 DF DAILY) 10 DF IN THE MORNING, 10 DF AT NOON AND 10 DF IN THE EVENING
     Route: 065
  5. ZONEGRAN [Suspect]
     Active Substance: ZONISAMIDE
     Dosage: (175 MG DAILY) 100 MG IN THE MORNING AND 75 MG IN THE EVENING
     Route: 048
     Dates: start: 201911, end: 202001
  6. VIMPAT [Concomitant]
     Active Substance: LACOSAMIDE
     Indication: EPILEPSY
     Dosage: (300 DF DAILY) 100 DF IN THE MORNING, AT 50 DF AT NOON, AND AT 150 DF IN THE EVENING
     Route: 065
  7. ZONEGRAN [Suspect]
     Active Substance: ZONISAMIDE
     Indication: EPILEPSY
     Route: 048
     Dates: start: 201811, end: 201911
  8. FYCOMPA [Suspect]
     Active Substance: PERAMPANEL
     Indication: EPILEPSY
     Route: 048

REACTIONS (4)
  - Neurological decompensation [Unknown]
  - Motor dysfunction [Unknown]
  - Bronchitis [Unknown]
  - Weight decreased [Unknown]

NARRATIVE: CASE EVENT DATE: 201912
